FAERS Safety Report 8442272 (Version 2)
Quarter: 2013Q1

REPORT INFORMATION
  Report Type: Spontaneous
  Country: US (occurrence: US)
  Receive Date: 20120306
  Receipt Date: 20130305
  Transmission Date: 20140127
  Serious: Yes (Other)
  Sender: FDA-Public Use
  Company Number: US-PFIZER INC-2012056929

PATIENT
  Age: 52 Year
  Sex: Male
  Weight: 158.73 kg

DRUGS (5)
  1. LIPITOR [Suspect]
     Indication: BLOOD CHOLESTEROL INCREASED
     Dosage: 40 MG, DAILY
  2. AMARYL [Concomitant]
     Indication: GLUCOSE TOLERANCE IMPAIRED
     Dosage: 4 MG, 2X/DAY
  3. METFORMIN [Concomitant]
     Indication: GLUCOSE TOLERANCE IMPAIRED
     Dosage: 500 MG, 2X/DAY
  4. ONGLYZA [Concomitant]
     Indication: GLUCOSE TOLERANCE IMPAIRED
     Dosage: 5 MG, DAILY
  5. WELCHOL [Concomitant]
     Indication: BLOOD CHOLESTEROL INCREASED
     Dosage: 625 MG, 2X/DAY

REACTIONS (3)
  - Accident at work [Unknown]
  - Back injury [Unknown]
  - Limb injury [Unknown]
